FAERS Safety Report 5781521-6 (Version None)
Quarter: 2008Q2

REPORT INFORMATION
  Report Type: 
  Country: None (occurrence: None)
  Receive Date: 20080623
  Receipt Date: 20080612
  Transmission Date: 20081010
  Serious: Yes (Hospitalization, Disabling)
  Sender: FDA-Public Use
  Company Number: FR-AMGEN-US288126

PATIENT
  Sex: Female

DRUGS (1)
  1. ENBREL [Suspect]
     Indication: RHEUMATOID ARTHRITIS
     Dosage: UNKNOWN
     Route: 058
     Dates: start: 20030327

REACTIONS (5)
  - BREAST CANCER METASTATIC [None]
  - EMOTIONAL DISORDER [None]
  - FATIGUE [None]
  - MOBILITY DECREASED [None]
  - RHEUMATOID ARTHRITIS [None]
